FAERS Safety Report 14074296 (Version 2)
Quarter: 2018Q2

REPORT INFORMATION
  Report Type: Spontaneous
  Country: FR (occurrence: FR)
  Receive Date: 20171011
  Receipt Date: 20180514
  Transmission Date: 20180711
  Serious: Yes (Other)
  Sender: FDA-Public Use
  Company Number: FR-MERCK KGAA-2029592

PATIENT
  Age: 48 Year
  Sex: Male
  Weight: 102 kg

DRUGS (5)
  1. LEVOTHYROX 175 [Suspect]
     Active Substance: LEVOTHYROXINE
     Route: 048
     Dates: start: 20170618
  2. KENZEN [Concomitant]
     Active Substance: CANDESARTAN
     Route: 048
  3. NOVOTHYROX [Suspect]
     Active Substance: LEVOTHYROXINE SODIUM
     Indication: THYROIDECTOMY
     Route: 048
     Dates: start: 201704, end: 20170617
  4. KENZEN [Concomitant]
     Active Substance: CANDESARTAN
     Route: 048
     Dates: start: 20170908
  5. CARDENSIEL [Suspect]
     Active Substance: BISOPROLOL FUMARATE
     Route: 048
     Dates: start: 20170908

REACTIONS (11)
  - Disturbance in attention [Not Recovered/Not Resolved]
  - Dizziness [Recovering/Resolving]
  - Hyperthyroidism [Not Recovered/Not Resolved]
  - Blood thyroid stimulating hormone decreased [Not Recovered/Not Resolved]
  - Amnesia [Not Recovered/Not Resolved]
  - Palpitations [Not Recovered/Not Resolved]
  - Anxiety [Recovered/Resolved]
  - Fatigue [Not Recovered/Not Resolved]
  - Weight decreased [Recovered/Resolved]
  - Insomnia [Not Recovered/Not Resolved]
  - Orthostatic hypotension [Not Recovered/Not Resolved]

NARRATIVE: CASE EVENT DATE: 201704
